FAERS Safety Report 21111740 (Version 1)
Quarter: 2022Q3

REPORT INFORMATION
  Report Type: Report from Study
  Country: CN (occurrence: CN)
  Receive Date: 20220721
  Receipt Date: 20220721
  Transmission Date: 20221026
  Serious: Yes (Hospitalization)
  Sender: FDA-Public Use
  Company Number: CN-NOVARTISPH-NVSC2019CN105935

PATIENT
  Age: 72 Year
  Sex: Male

DRUGS (4)
  1. PEMETREXED [Suspect]
     Active Substance: PEMETREXED
     Indication: Lung adenocarcinoma
     Dosage: 890 MG, Q3W
     Route: 042
     Dates: start: 20190418
  2. HERBALS\DIAMMONIUM GLYCYRRHIZINATE [Concomitant]
     Active Substance: HERBALS\DIAMMONIUM GLYCYRRHIZINATE
     Indication: Liver injury
     Dosage: 3 GRAIN
     Route: 048
     Dates: start: 20190425, end: 20190704
  3. PHOSPHOLIPID [Concomitant]
     Active Substance: PHOSPHOLIPID
     Indication: Liver injury
     Dosage: 2 GRAIN
     Route: 048
     Dates: start: 20190425, end: 20190704
  4. BICYCLOL [Concomitant]
     Active Substance: BICYCLOL
     Indication: Liver injury
     Dosage: 0.5 SLICE
     Route: 048
     Dates: start: 20190425, end: 20190724

REACTIONS (1)
  - Syncope [Recovered/Resolved]

NARRATIVE: CASE EVENT DATE: 20190716
